FAERS Safety Report 21948022 (Version 1)
Quarter: 2023Q1

REPORT INFORMATION
  Report Type: Spontaneous
  Country: US (occurrence: None)
  Receive Date: 20230203
  Receipt Date: 20230203
  Transmission Date: 20230417
  Serious: Yes (Other)
  Sender: FDA-Public Use
  Company Number: US-Hikma Pharmaceuticals USA Inc.-US-H14001-23-00344

PATIENT

DRUGS (4)
  1. BUPRENORPHINE [Suspect]
     Active Substance: BUPRENORPHINE
     Indication: Product used for unknown indication
     Route: 065
     Dates: start: 2020
  2. BUPRENORPHINE [Suspect]
     Active Substance: BUPRENORPHINE
     Route: 065
  3. BUPRENORPHINE [Suspect]
     Active Substance: BUPRENORPHINE
     Dosage: 6 MG IN THE MORNING AND 2 MG IN THE EVENING
     Route: 065
  4. BUPRENORPHINE [Suspect]
     Active Substance: BUPRENORPHINE
     Route: 065

REACTIONS (9)
  - Blood testosterone decreased [Unknown]
  - Functional gastrointestinal disorder [Unknown]
  - Piloerection [Unknown]
  - Yawning [Unknown]
  - Lacrimation increased [Unknown]
  - Fatigue [Unknown]
  - Withdrawal syndrome [Unknown]
  - Adverse event [Unknown]
  - Wrong technique in product usage process [Unknown]
